FAERS Safety Report 5145454-0 (Version None)
Quarter: 2006Q4

REPORT INFORMATION
  Report Type: 
  Country: None (occurrence: None)
  Receive Date: 20061101
  Receipt Date: 20061019
  Transmission Date: 20070319
  Serious: Yes (Other)
  Sender: FDA-Public Use
  Company Number: 231490

PATIENT
  Age: 84 Year
  Sex: Male

DRUGS (1)
  1. RITUXAN [Suspect]
     Indication: NON-HODGKIN'S LYMPHOMA
     Dosage: 375 MG/M2, 1/WEEK, INTRAVENOUS
     Route: 042

REACTIONS (2)
  - DEMENTIA [None]
  - DYSPHAGIA [None]
